FAERS Safety Report 20994123 (Version 1)
Quarter: 2022Q2

REPORT INFORMATION
  Report Type: Spontaneous
  Country: FR (occurrence: FR)
  Receive Date: 20220622
  Receipt Date: 20220622
  Transmission Date: 20220721
  Serious: Yes (Hospitalization)
  Sender: FDA-Public Use
  Company Number: FR-MYLANLABS-2022M1046378

PATIENT
  Age: 8 Decade
  Weight: 78 kg

DRUGS (4)
  1. MEROPENEM [Suspect]
     Active Substance: MEROPENEM
     Indication: Pseudomonas aeruginosa meningitis
     Dosage: 2 GRAM, Q8H
  2. MEROPENEM [Suspect]
     Active Substance: MEROPENEM
     Indication: CNS ventriculitis
  3. CIPROFLOXACIN [Suspect]
     Active Substance: CIPROFLOXACIN
     Indication: Pseudomonas aeruginosa meningitis
     Dosage: 750 MILLIGRAM, BID
  4. CIPROFLOXACIN [Suspect]
     Active Substance: CIPROFLOXACIN
     Indication: CNS ventriculitis

REACTIONS (1)
  - Drug ineffective [Unknown]
